FAERS Safety Report 21057388 (Version 6)
Quarter: 2023Q1

REPORT INFORMATION
  Report Type: Report from Study
  Country: CN (occurrence: None)
  Receive Date: 20220708
  Receipt Date: 20230306
  Transmission Date: 20230418
  Serious: Yes (Hospitalization)
  Sender: FDA-Public Use
  Company Number: CN-ROCHE-3073049

PATIENT
  Age: 42 Year
  Sex: Male
  Weight: 84 kg

DRUGS (1)
  1. VEMURAFENIB [Suspect]
     Active Substance: VEMURAFENIB
     Indication: Colorectal cancer metastatic
     Route: 048
     Dates: start: 20220315

REACTIONS (3)
  - Intestinal obstruction [Recovered/Resolved]
  - Renal failure [Recovering/Resolving]
  - Anal fistula [Recovered/Resolved]

NARRATIVE: CASE EVENT DATE: 20220404
